FAERS Safety Report 12903181 (Version 1)
Quarter: 2016Q4

REPORT INFORMATION
  Report Type: Spontaneous
  Country: US (occurrence: US)
  Receive Date: 20161102
  Receipt Date: 20161102
  Transmission Date: 20170207
  Serious: Yes (Other)
  Sender: FDA-Public Use
  Company Number: US-PFIZER INC-2016505957

PATIENT
  Age: 89 Year
  Sex: Female
  Weight: 45.36 kg

DRUGS (3)
  1. TYLENOL [Concomitant]
     Active Substance: ACETAMINOPHEN
     Dosage: 1 DF, UNK
  2. GABAPENTIN. [Concomitant]
     Active Substance: GABAPENTIN
     Dosage: 2 DF, UNK
  3. TOVIAZ [Suspect]
     Active Substance: FESOTERODINE FUMARATE
     Indication: BLADDER DISORDER
     Dosage: 4 MG, UNK
     Dates: start: 20161027

REACTIONS (8)
  - Flatulence [Recovering/Resolving]
  - Sensation of foreign body [Unknown]
  - Dysgeusia [Recovering/Resolving]
  - Agitation [Unknown]
  - Eructation [Recovering/Resolving]
  - Throat irritation [Recovering/Resolving]
  - Vomiting [Recovering/Resolving]
  - Pain [Unknown]

NARRATIVE: CASE EVENT DATE: 201610
